FAERS Safety Report 7388078-7 (Version None)
Quarter: 2011Q2

REPORT INFORMATION
  Report Type: 
  Country: None (occurrence: None)
  Receive Date: 20110401
  Receipt Date: 20110328
  Transmission Date: 20111010
  Serious: Yes (Other)
  Sender: FDA-Public Use
  Company Number: US-PFIZER INC-2011067636

PATIENT
  Sex: Female
  Weight: 72.6 kg

DRUGS (6)
  1. PREDNISONE [Concomitant]
     Dosage: UNK
  2. LYRICA [Suspect]
     Dosage: 600 MG, 2X/DAY
     Dates: start: 20110301
  3. LISINOPRIL [Concomitant]
     Indication: HYPERTENSION
     Dosage: UNK
  4. LYRICA [Suspect]
     Indication: TRIGEMINAL NEURALGIA
     Dosage: 300 MG, 2X/DAY
     Dates: start: 20080801, end: 20110301
  5. SPIRIVA [Concomitant]
     Dosage: UNK
  6. VYTORIN [Concomitant]
     Indication: BLOOD CHOLESTEROL INCREASED
     Dosage: UNK

REACTIONS (5)
  - DYSKINESIA [None]
  - DRUG INEFFECTIVE [None]
  - WEIGHT INCREASED [None]
  - MUSCLE SPASMS [None]
  - INFLAMMATION [None]
